FAERS Safety Report 24967669 (Version 1)
Quarter: 2025Q1

REPORT INFORMATION
  Report Type: Spontaneous
  Country: GB (occurrence: GB)
  Receive Date: 20250214
  Receipt Date: 20250214
  Transmission Date: 20250408
  Serious: Yes (Death, Congenital Anomaly, Other)
  Sender: SANDOZ
  Company Number: GB-GlaxoSmithKline-GB2019GSK155832

PATIENT
  Age: 6 Day
  Sex: Male
  Weight: 3 kg

DRUGS (55)
  1. ABACAVIR SULFATE\LAMIVUDINE [Suspect]
     Active Substance: ABACAVIR SULFATE\LAMIVUDINE
     Indication: HIV infection
     Dosage: MOTHER DOSE: 400 MG, QD
     Route: 064
  2. ABACAVIR SULFATE\LAMIVUDINE [Suspect]
     Active Substance: ABACAVIR SULFATE\LAMIVUDINE
     Indication: Foetal exposure during pregnancy
     Route: 064
  3. ABACAVIR SULFATE [Suspect]
     Active Substance: ABACAVIR SULFATE
     Dosage: 400 DOSAGE FORM, QD
     Route: 064
  4. ABACAVIR SULFATE [Suspect]
     Active Substance: ABACAVIR SULFATE
     Dosage: 400 DOSAGE FORM, QD
     Route: 064
  5. ABACAVIR SULFATE [Suspect]
     Active Substance: ABACAVIR SULFATE
     Indication: Foetal exposure during pregnancy
     Route: 064
  6. ASPIRIN [Suspect]
     Active Substance: ASPIRIN
     Route: 064
  7. ASPIRIN [Suspect]
     Active Substance: ASPIRIN
     Route: 064
  8. ASPIRIN [Suspect]
     Active Substance: ASPIRIN
     Route: 064
  9. ASPIRIN [Suspect]
     Active Substance: ASPIRIN
     Indication: Foetal exposure during pregnancy
     Route: 064
  10. ASPIRIN [Suspect]
     Active Substance: ASPIRIN
     Route: 064
  11. ASPIRIN [Suspect]
     Active Substance: ASPIRIN
     Indication: Hypertension
     Route: 064
  12. ASPIRIN [Suspect]
     Active Substance: ASPIRIN
     Route: 064
  13. ASPIRIN [Suspect]
     Active Substance: ASPIRIN
     Route: 064
  14. ASPIRIN [Suspect]
     Active Substance: ASPIRIN
     Route: 064
  15. CHOLECALCIFEROL [Suspect]
     Active Substance: CHOLECALCIFEROL
     Route: 064
  16. CHOLECALCIFEROL [Suspect]
     Active Substance: CHOLECALCIFEROL
     Indication: Foetal exposure during pregnancy
     Route: 064
  17. CHOLECALCIFEROL [Suspect]
     Active Substance: CHOLECALCIFEROL
     Route: 064
  18. COMBIVIR [Suspect]
     Active Substance: LAMIVUDINE\ZIDOVUDINE
     Dosage: 900 MG, QD,(600MG/ 300 MG)
     Route: 064
  19. COMBIVIR [Suspect]
     Active Substance: LAMIVUDINE\ZIDOVUDINE
     Indication: HIV infection
     Route: 064
  20. COMBIVIR [Suspect]
     Active Substance: LAMIVUDINE\ZIDOVUDINE
     Indication: Foetal exposure during pregnancy
     Route: 064
  21. ERGOCALCIFEROL [Suspect]
     Active Substance: ERGOCALCIFEROL
     Route: 064
  22. ERGOCALCIFEROL [Suspect]
     Active Substance: ERGOCALCIFEROL
     Route: 064
  23. ERGOCALCIFEROL [Suspect]
     Active Substance: ERGOCALCIFEROL
     Route: 064
  24. ERGOCALCIFEROL [Suspect]
     Active Substance: ERGOCALCIFEROL
     Indication: Foetal exposure during pregnancy
     Route: 064
  25. ERGOCALCIFEROL [Suspect]
     Active Substance: ERGOCALCIFEROL
     Indication: Product used for unknown indication
     Route: 064
  26. ERGOCALCIFEROL [Suspect]
     Active Substance: ERGOCALCIFEROL
     Route: 064
  27. ERGOCALCIFEROL [Suspect]
     Active Substance: ERGOCALCIFEROL
     Route: 064
  28. LABETALOL [Suspect]
     Active Substance: LABETALOL
     Indication: Foetal exposure during pregnancy
     Route: 064
  29. LABETALOL [Suspect]
     Active Substance: LABETALOL
     Route: 064
  30. LABETALOL [Suspect]
     Active Substance: LABETALOL
     Route: 064
  31. LABETALOL [Suspect]
     Active Substance: LABETALOL
     Indication: Hypertension
     Route: 064
  32. LABETALOL [Suspect]
     Active Substance: LABETALOL
     Route: 064
  33. LAMIVUDINE [Suspect]
     Active Substance: LAMIVUDINE
     Dosage: 1 DF, QD
     Route: 064
  34. LAMIVUDINE [Suspect]
     Active Substance: LAMIVUDINE
     Route: 064
  35. LAMIVUDINE [Suspect]
     Active Substance: LAMIVUDINE
     Route: 064
  36. LAMIVUDINE [Suspect]
     Active Substance: LAMIVUDINE
     Route: 064
  37. LAMIVUDINE [Suspect]
     Active Substance: LAMIVUDINE
     Indication: HIV infection
     Route: 064
  38. LAMIVUDINE [Suspect]
     Active Substance: LAMIVUDINE
     Route: 064
  39. LAMIVUDINE [Suspect]
     Active Substance: LAMIVUDINE
     Indication: Foetal exposure during pregnancy
     Route: 064
  40. LAMIVUDINE AND ZIDOVUDINE [Suspect]
     Active Substance: LAMIVUDINE\ZIDOVUDINE
     Route: 064
  41. LAMIVUDINE AND ZIDOVUDINE [Suspect]
     Active Substance: LAMIVUDINE\ZIDOVUDINE
     Indication: Foetal exposure during pregnancy
     Route: 064
  42. NEVIRAPINE [Suspect]
     Active Substance: NEVIRAPINE
     Indication: Foetal exposure during pregnancy
     Route: 064
  43. NEVIRAPINE [Suspect]
     Active Substance: NEVIRAPINE
     Indication: HIV infection
  44. NIFEDIPINE [Suspect]
     Active Substance: NIFEDIPINE
     Route: 064
  45. NIFEDIPINE [Suspect]
     Active Substance: NIFEDIPINE
     Indication: Foetal exposure during pregnancy
     Route: 064
  46. NIFEDIPINE [Suspect]
     Active Substance: NIFEDIPINE
     Indication: Hypertension
     Route: 064
  47. VIRAMUNE [Suspect]
     Active Substance: NEVIRAPINE
     Dosage: 400 MG, QD
     Route: 064
  48. VIRAMUNE [Suspect]
     Active Substance: NEVIRAPINE
     Indication: HIV infection
     Dosage: MATERNAL DOSE: 400 MG, QD
     Route: 064
  49. VIRAMUNE [Suspect]
     Active Substance: NEVIRAPINE
     Indication: Foetal exposure during pregnancy
     Route: 064
  50. VITAMIN D [Suspect]
     Active Substance: VITAMIN D NOS
     Route: 064
  51. VITAMIN D [Suspect]
     Active Substance: VITAMIN D NOS
     Route: 064
  52. VITAMIN D [Suspect]
     Active Substance: VITAMIN D NOS
     Indication: Foetal exposure during pregnancy
     Route: 064
  53. VITAMIN D [Suspect]
     Active Substance: VITAMIN D NOS
     Indication: Product used for unknown indication
     Route: 064
  54. VITAMIN D2 [Concomitant]
     Active Substance: ERGOCALCIFEROL
     Indication: Product used for unknown indication
     Route: 064
  55. VITAMIN D2 [Concomitant]
     Active Substance: ERGOCALCIFEROL
     Indication: Foetal exposure during pregnancy
     Route: 064

REACTIONS (14)
  - Polydactyly [Fatal]
  - Pulmonary hypertension [Fatal]
  - Atrioventricular septal defect [Fatal]
  - Foetal exposure during pregnancy [Fatal]
  - Gene mutation [Fatal]
  - Trisomy 21 [Fatal]
  - Dandy-Walker syndrome [Fatal]
  - Congenital central nervous system anomaly [Fatal]
  - Macrocephaly [Fatal]
  - Speech disorder developmental [Fatal]
  - Neurodevelopmental disorder [Fatal]
  - Attention deficit hyperactivity disorder [Fatal]
  - Ataxia [Fatal]
  - Death [Fatal]

NARRATIVE: CASE EVENT DATE: 20110305
